FAERS Safety Report 23377773 (Version 4)
Quarter: 2024Q1

REPORT INFORMATION
  Report Type: Spontaneous
  Country: US (occurrence: US)
  Receive Date: 20240108
  Receipt Date: 20240220
  Transmission Date: 20240410
  Serious: Yes (Other)
  Sender: FDA-Public Use
  Company Number: US-MYLANLABS-2024M1000422

PATIENT
  Sex: Male

DRUGS (3)
  1. PREGABALIN [Suspect]
     Active Substance: PREGABALIN
     Indication: Product used for unknown indication
     Dosage: 50 MILLIGRAM
     Route: 065
  2. PREGABALIN [Suspect]
     Active Substance: PREGABALIN
     Dosage: 100 MILLIGRAM
     Route: 065
  3. LISINOPRIL [Concomitant]
     Active Substance: LISINOPRIL
     Dosage: UNK
     Route: 065

REACTIONS (14)
  - Blindness [Unknown]
  - Swelling [Unknown]
  - Cerebral calcification [Unknown]
  - Fall [Unknown]
  - Decreased immune responsiveness [Unknown]
  - Trigeminal nerve disorder [Unknown]
  - Dyspnoea [Unknown]
  - Blood pressure increased [Unknown]
  - Nerve injury [Unknown]
  - Rash [Unknown]
  - Dysphagia [Unknown]
  - Diplopia [Unknown]
  - Hypoaesthesia [Unknown]
  - Gait disturbance [Unknown]
